FAERS Safety Report 20046614 (Version 2)
Quarter: 2022Q2

REPORT INFORMATION
  Report Type: Spontaneous
  Country: US (occurrence: US)
  Receive Date: 20211109
  Receipt Date: 20220601
  Transmission Date: 20220721
  Serious: Yes (Other)
  Sender: FDA-Public Use
  Company Number: US-GLAXOSMITHKLINE-US2021GSK230253

PATIENT
  Sex: Male

DRUGS (6)
  1. ZANTAC [Suspect]
     Active Substance: RANITIDINE HYDROCHLORIDE
     Indication: Product used for unknown indication
     Dosage: UNK
     Route: 065
  2. ZANTAC [Suspect]
     Active Substance: RANITIDINE HYDROCHLORIDE
     Indication: Dyspepsia
     Dosage: 75 MG (3-4 X WEEKLY)
     Route: 065
     Dates: start: 200801, end: 201908
  3. ZANTAC [Suspect]
     Active Substance: RANITIDINE HYDROCHLORIDE
     Dosage: 150 MG (3-4 X WEEKLY)
     Route: 065
     Dates: start: 200801, end: 201908
  4. RANITIDINE [Suspect]
     Active Substance: RANITIDINE
     Indication: Product used for unknown indication
     Dosage: UNK
     Route: 065
     Dates: start: 200801, end: 201908
  5. RANITIDINE [Suspect]
     Active Substance: RANITIDINE
     Indication: Dyspepsia
     Dosage: 150 MG (3-4 X WEEKLY)
     Route: 065
     Dates: start: 200801, end: 201908
  6. RANITIDINE [Suspect]
     Active Substance: RANITIDINE
     Indication: Hyperchlorhydria

REACTIONS (17)
  - Colon cancer metastatic [Unknown]
  - Adenocarcinoma of colon [Unknown]
  - Metastases to liver [Unknown]
  - Colorectal cancer [Unknown]
  - Gastrointestinal carcinoma [Unknown]
  - Hepatic cancer [Unknown]
  - Abdominal discomfort [Unknown]
  - Haemorrhoids [Unknown]
  - Diarrhoea [Unknown]
  - Faeces discoloured [Unknown]
  - Gastritis [Unknown]
  - Adverse event [Unknown]
  - Hepatic lesion [Unknown]
  - Hepatic mass [Unknown]
  - Hepatomegaly [Unknown]
  - Large intestine polyp [Unknown]
  - Intestinal mass [Unknown]
